FAERS Safety Report 16369369 (Version 1)
Quarter: 2019Q2

REPORT INFORMATION
  Report Type: Spontaneous
  Country: US (occurrence: US)
  Receive Date: 20190423
  Receipt Date: 20190423
  Transmission Date: 20190711
  Serious: No
  Sender: FDA-Public Use
  Company Number: None

PATIENT
  Age: 57 Year
  Sex: Male

DRUGS (1)
  1. ZYTIGA [Suspect]
     Active Substance: ABIRATERONE ACETATE
     Dates: start: 201812

REACTIONS (4)
  - Condition aggravated [None]
  - Stomatitis [None]
  - Generalised oedema [None]
  - Neuropathy peripheral [None]

NARRATIVE: CASE EVENT DATE: 20190301
